FAERS Safety Report 4387862-1 (Version None)
Quarter: 2004Q2

REPORT INFORMATION
  Report Type: 
  Country: None (occurrence: None)
  Receive Date: 20040630
  Receipt Date: 20040625
  Transmission Date: 20050107
  Serious: Yes (Death, Hospitalization)
  Sender: FDA-Public Use
  Company Number: DE-BRISTOL-MYERS SQUIBB COMPANY-12626370

PATIENT
  Age: 53 Year
  Sex: Male
  Weight: 98 kg

DRUGS (7)
  1. CARBOPLATIN [Suspect]
     Indication: NON-SMALL CELL LUNG CANCER
     Dosage: THERAPY CONT'D UNTIL CYCLE 14
     Route: 042
     Dates: start: 20030806, end: 20030806
  2. TAXOL [Suspect]
     Indication: NON-SMALL CELL LUNG CANCER
     Dosage: THERAPY CONTINUED TO CYCLE 14
     Route: 042
     Dates: start: 20030806, end: 20030806
  3. RADIATION THERAPY [Concomitant]
     Indication: NON-SMALL CELL LUNG CANCER
     Dates: start: 20030624, end: 20030812
  4. FENISTIL [Concomitant]
     Indication: PREMEDICATION
     Route: 042
  5. RANITIDINE [Concomitant]
     Indication: PREMEDICATION
     Route: 042
  6. KEVATRIL [Concomitant]
     Indication: PREMEDICATION
     Route: 042
  7. DEXAMETHASONE [Concomitant]
     Indication: PREMEDICATION
     Route: 042

REACTIONS (5)
  - ASTHENIA [None]
  - BLINDNESS [None]
  - DEHYDRATION [None]
  - NON-SMALL CELL LUNG CANCER [None]
  - PYREXIA [None]
